FAERS Safety Report 9394726 (Version 1)
Quarter: 2013Q3

REPORT INFORMATION
  Report Type: Spontaneous
  Country: IT (occurrence: IT)
  Receive Date: 20130711
  Receipt Date: 20130711
  Transmission Date: 20140515
  Serious: Yes (Death, Hospitalization, Other)
  Sender: FDA-Public Use
  Company Number: IT-SANOFI-AVENTIS-200914921GDDC

PATIENT
  Age: 77 Year
  Sex: Male

DRUGS (8)
  1. METFORMIN [Suspect]
     Indication: TYPE 2 DIABETES MELLITUS
     Route: 048
  2. GLIBENCLAMIDE [Suspect]
     Indication: TYPE 2 DIABETES MELLITUS
     Dosage: GIVEN AT 0800, 1300 AND 2000
     Route: 048
  3. ERLOTINIB [Suspect]
     Indication: LUNG ADENOCARCINOMA STAGE III
     Route: 048
     Dates: start: 20070802
  4. REPAGLINIDE [Concomitant]
     Dosage: 1 MG IN 3 DIVIDED DOSINGS, AT 8:00, 13:00 AND 20:00 H
  5. DOXAZOSIN [Concomitant]
  6. OMEPRAZOLE [Concomitant]
  7. PREDNISONE [Concomitant]
  8. FUROSEMIDE [Concomitant]

REACTIONS (6)
  - Hepatitis acute [Fatal]
  - Alanine aminotransferase increased [Fatal]
  - Aspartate aminotransferase increased [Fatal]
  - Lactic acidosis [Fatal]
  - Tachypnoea [Unknown]
  - Delirium [Unknown]
